FAERS Safety Report 18025066 (Version 2)
Quarter: 2020Q3

REPORT INFORMATION
  Report Type: Spontaneous
  Country: US (occurrence: US)
  Receive Date: 20200715
  Receipt Date: 20200904
  Transmission Date: 20201103
  Serious: Yes (Other)
  Sender: FDA-Public Use
  Company Number: US-PFIZER INC-2020268789

PATIENT
  Age: 80 Year
  Sex: Female
  Weight: 53.52 kg

DRUGS (5)
  1. AFINITOR [Concomitant]
     Active Substance: EVEROLIMUS
     Dosage: UNK
  2. EXEMESTANE. [Concomitant]
     Active Substance: EXEMESTANE
     Dosage: UNK  (1 TABLET DAILY AFTER MEALS)
  3. MEKTOVI [Suspect]
     Active Substance: BINIMETINIB
     Dosage: 45 MG
  4. MEKTOVI [Suspect]
     Active Substance: BINIMETINIB
     Indication: BREAST CANCER FEMALE
     Dosage: 30 MG, 2X/DAY
     Route: 048
  5. BRAFTOVI [Suspect]
     Active Substance: ENCORAFENIB
     Indication: BREAST CANCER
     Dosage: 300 MG, DAILY
     Route: 048

REACTIONS (12)
  - Red blood cell count decreased [Recovered/Resolved]
  - White blood cell count decreased [Recovered/Resolved]
  - Hot flush [Unknown]
  - Product use in unapproved indication [Unknown]
  - Drug effective for unapproved indication [Unknown]
  - Gastrointestinal disorder [Unknown]
  - Blood cholesterol increased [Unknown]
  - Off label use [Unknown]
  - Blood glucose increased [Unknown]
  - Nipple disorder [Unknown]
  - Inflammatory carcinoma of the breast [Unknown]
  - Abdominal pain [Unknown]
